FAERS Safety Report 5766175-7 (Version None)
Quarter: 2008Q2

REPORT INFORMATION
  Report Type: 
  Country: None (occurrence: None)
  Receive Date: 20080606
  Receipt Date: 20080527
  Transmission Date: 20081010
  Serious: Yes (Hospitalization)
  Sender: FDA-Public Use
  Company Number: 2008-01517

PATIENT
  Age: 60 Year
  Sex: Male

DRUGS (18)
  1. VELCADE [Suspect]
     Indication: MYELOFIBROSIS
     Dosage: 1.3 MG/M2, INTRAVENOUS
     Route: 042
     Dates: start: 20080305, end: 20080311
  2. TACROLIMUS [Suspect]
     Indication: MYELOFIBROSIS
     Dosage: 0.05 MG/KG,ORAL
     Route: 048
     Dates: start: 20080301
  3. METHOTREXATE [Suspect]
     Indication: MYELOFIBROSIS
     Dosage: 5 MG/M2, INTRAVENOUS
     Route: 042
     Dates: start: 20080305, end: 20080315
  4. ACTOS [Concomitant]
  5. ACYCLOVIR [Concomitant]
  6. BACTRIM [Concomitant]
  7. CELLCEPT [Concomitant]
  8. CLOBETASOL PROPIONATE [Concomitant]
  9. DIOVAN HCT [Concomitant]
  10. FOLIC ACID [Concomitant]
  11. HUMALOG [Concomitant]
  12. HYDROXYZINE HCL [Concomitant]
  13. LANTUS [Concomitant]
  14. MAGNESIUM OXIDE (MAGNESIUM OXIDE) [Concomitant]
  15. NEURONTIN [Concomitant]
  16. PREDNISONE TAB [Concomitant]
  17. PROCARDIA [Concomitant]
  18. RAPAMUNE [Concomitant]

REACTIONS (7)
  - ACINETOBACTER INFECTION [None]
  - CATHETER RELATED INFECTION [None]
  - FUNGAL INFECTION [None]
  - GLUCOSE TOLERANCE IMPAIRED [None]
  - GRAFT VERSUS HOST DISEASE [None]
  - STEVENS-JOHNSON SYNDROME [None]
  - TOXIC EPIDERMAL NECROLYSIS [None]
